FAERS Safety Report 7988568-X (Version None)
Quarter: 2011Q4

REPORT INFORMATION
  Report Type: 
  Country: None (occurrence: None)
  Receive Date: 20111218
  Receipt Date: 20101101
  Transmission Date: 20120403
  Serious: Yes (Death)
  Sender: FDA-Public Use
  Company Number: PHHY2010NL73487

PATIENT
  Age: 86 Year
  Sex: Male

DRUGS (1)
  1. TOBI [Suspect]
     Indication: BRONCHIECTASIS

REACTIONS (1)
  - DEATH [None]
